FAERS Safety Report 16693125 (Version 2)
Quarter: 2019Q3

REPORT INFORMATION
  Report Type: Report from Study
  Country: US (occurrence: US)
  Receive Date: 20190812
  Receipt Date: 20190826
  Transmission Date: 20191004
  Serious: Yes (Hospitalization, Other)
  Sender: FDA-Public Use
  Company Number: US-OTSUKA-2019_028890

PATIENT
  Sex: Female

DRUGS (1)
  1. TOLVAPTAN [Suspect]
     Active Substance: TOLVAPTAN
     Indication: HYPONATRAEMIA
     Dosage: 15 MG, TIW
     Route: 048
     Dates: start: 20190612

REACTIONS (14)
  - Sinus tachycardia [Unknown]
  - Vomiting [Unknown]
  - Anaemia [Unknown]
  - Inappropriate schedule of product administration [Unknown]
  - Malnutrition [Unknown]
  - Small intestinal obstruction [Unknown]
  - Dyslipidaemia [Unknown]
  - Acute respiratory failure [Unknown]
  - Lung cancer metastatic [Unknown]
  - Upper gastrointestinal haemorrhage [Unknown]
  - Hypertension [Unknown]
  - Carotid artery disease [Unknown]
  - Pneumonia aspiration [Unknown]
  - Neutropenia [Unknown]
